FAERS Safety Report 23616839 (Version 1)
Quarter: 2024Q1

REPORT INFORMATION
  Report Type: Spontaneous
  Country: US (occurrence: US)
  Receive Date: 20240311
  Receipt Date: 20240311
  Transmission Date: 20240410
  Serious: Yes (Other)
  Sender: FDA-Public Use
  Company Number: US-OTSUKA-2024_005976

PATIENT
  Sex: Female

DRUGS (9)
  1. BUSULFAN [Suspect]
     Active Substance: BUSULFAN
     Indication: Immunodeficiency
     Dosage: UNK
     Route: 065
  2. BUSULFAN [Suspect]
     Active Substance: BUSULFAN
     Indication: Allogenic stem cell transplantation
  3. BUSULFAN [Suspect]
     Active Substance: BUSULFAN
     Indication: Bone marrow conditioning regimen
  4. CYCLOPHOSPHAMIDE [Suspect]
     Active Substance: CYCLOPHOSPHAMIDE
     Indication: Immunodeficiency
     Dosage: LOW DOSE (TOTAL 24-40MG/KG OVER 8 DAYS)
     Route: 065
  5. CYCLOPHOSPHAMIDE [Suspect]
     Active Substance: CYCLOPHOSPHAMIDE
     Indication: Allogenic stem cell transplantation
     Dosage: HIGH DOSE, (TOTAL 100MG/KG)
     Route: 065
  6. CYCLOPHOSPHAMIDE [Suspect]
     Active Substance: CYCLOPHOSPHAMIDE
     Indication: Bone marrow conditioning regimen
  7. PENTOSTATIN [Suspect]
     Active Substance: PENTOSTATIN
     Indication: Immunodeficiency
     Dosage: UNK
     Route: 065
  8. PENTOSTATIN [Suspect]
     Active Substance: PENTOSTATIN
     Indication: Allogenic stem cell transplantation
  9. PENTOSTATIN [Suspect]
     Active Substance: PENTOSTATIN
     Indication: Bone marrow conditioning regimen

REACTIONS (3)
  - Hypothalamo-pituitary disorder [Not Recovered/Not Resolved]
  - Ovarian disorder [Not Recovered/Not Resolved]
  - Product use in unapproved indication [Unknown]
